FAERS Safety Report 23184328 (Version 3)
Quarter: 2023Q4

REPORT INFORMATION
  Report Type: Other
  Country: US (occurrence: None)
  Receive Date: 20231115
  Receipt Date: 20231218
  Transmission Date: 20240109
  Serious: No
  Sender: FDA-Public Use
  Company Number: US-ROCHE-3454104

PATIENT
  Age: 61 Year
  Sex: Male
  Weight: 77.18 kg

DRUGS (5)
  1. OCREVUS [Suspect]
     Active Substance: OCRELIZUMAB
     Indication: Primary progressive multiple sclerosis
     Route: 042
  2. OCREVUS [Suspect]
     Active Substance: OCRELIZUMAB
     Route: 042
  3. ATORVASTATIN CALCIUM [Concomitant]
     Active Substance: ATORVASTATIN CALCIUM
     Route: 048
  4. CITALOPRAM HYDROBROMIDE [Concomitant]
     Active Substance: CITALOPRAM HYDROBROMIDE
     Route: 048
  5. DALFAMPRIDINE [Concomitant]
     Active Substance: DALFAMPRIDINE

REACTIONS (10)
  - Multiple sclerosis [Not Recovered/Not Resolved]
  - Fall [Unknown]
  - Micturition urgency [Unknown]
  - Cough [Unknown]
  - COVID-19 [Unknown]
  - Hypertension [Unknown]
  - Dysarthria [Unknown]
  - Balance disorder [Unknown]
  - Gait disturbance [Unknown]
  - Dysmetria [Unknown]
